FAERS Safety Report 25921953 (Version 1)
Quarter: 2025Q4

REPORT INFORMATION
  Report Type: Spontaneous
  Country: JP (occurrence: JP)
  Receive Date: 20251015
  Receipt Date: 20251015
  Transmission Date: 20260118
  Serious: Yes (Hospitalization, Other)
  Sender: PHARMOBEDIENT CONSULTING, LLC
  Company Number: JP-Pharmobedient-000310

PATIENT
  Age: 12 Day
  Sex: Female
  Weight: 0 kg

DRUGS (1)
  1. LEVOFLOXACIN [Suspect]
     Active Substance: LEVOFLOXACIN
     Indication: Prophylaxis

REACTIONS (2)
  - Drug resistance [Unknown]
  - Conjunctivitis gonococcal neonatal [Recovered/Resolved]
